FAERS Safety Report 7911806-6 (Version None)
Quarter: 2011Q4

REPORT INFORMATION
  Report Type: 
  Country: None (occurrence: None)
  Receive Date: 20111114
  Receipt Date: 20111029
  Transmission Date: 20120403
  Serious: Yes (Other)
  Sender: FDA-Public Use
  Company Number: BE-SANOFI-AVENTIS-2011SA071665

PATIENT
  Age: 34 Year
  Sex: Female

DRUGS (8)
  1. ALL OTHER THERAPEUTIC PRODUCTS [Suspect]
     Indication: BREAST CANCER
     Route: 065
  2. PACLITAXEL [Suspect]
     Indication: BREAST CANCER
     Dosage: EVERY TWO OF THREE WEEKS
     Route: 065
  3. ZOLPIDEM [Suspect]
     Route: 065
  4. MIRTAZAPINE [Suspect]
     Route: 065
  5. ZOLADEX [Concomitant]
     Indication: BREAST CANCER
     Route: 065
  6. TAMOXIFEN CITRATE [Suspect]
     Indication: BREAST CANCER
     Route: 065
  7. ANASTRAZOLE [Suspect]
     Indication: BREAST CANCER
     Route: 065
  8. MACRO ANTIOXIDANT [Suspect]
     Route: 065

REACTIONS (4)
  - ALANINE AMINOTRANSFERASE INCREASED [None]
  - HAEMATOTOXICITY [None]
  - HEPATITIS [None]
  - ASPARTATE AMINOTRANSFERASE INCREASED [None]
